FAERS Safety Report 21071446 (Version 1)
Quarter: 2022Q3

REPORT INFORMATION
  Report Type: Spontaneous
  Country: US (occurrence: None)
  Receive Date: 20220712
  Receipt Date: 20220712
  Transmission Date: 20221026
  Serious: Yes (Hospitalization)
  Sender: FDA-Public Use
  Company Number: None

PATIENT
  Sex: Female

DRUGS (16)
  1. AIMOVIG [Suspect]
     Active Substance: ERENUMAB-AOOE
     Indication: Migraine
     Dosage: 140MG/ML??INJECT ONE PEN UNDER THE SKIN (SUBCUTANEOUS INJECTION) AS DIRECTED BY PHYSICIAN ONE TIME ?
     Route: 058
     Dates: start: 20220302
  2. ATORVASTATIN [Concomitant]
     Active Substance: ATORVASTATIN
  3. BACLOFEN [Concomitant]
     Active Substance: BACLOFEN
  4. BUPROPION TAB [Concomitant]
  5. ESCITALOPRAM TAB [Concomitant]
  6. FISH OIL CAP [Concomitant]
  7. GABAPENTIN [Concomitant]
     Active Substance: GABAPENTIN
  8. HYDRO/APAP TAB [Concomitant]
  9. LEVOTHYROXIN TAB [Concomitant]
  10. LORATADINE TAB [Concomitant]
  11. MAGNESIUM CAP [Concomitant]
  12. OMEPRAZOLE SODIUM [Concomitant]
     Active Substance: OMEPRAZOLE SODIUM
  13. PROPRANOLOL TAB [Concomitant]
  14. RELPAX TAB [Concomitant]
  15. VITAMIN B12 TAB [Concomitant]
  16. VITAMIN D3 CAP [Concomitant]

REACTIONS (2)
  - Hospitalisation [None]
  - Therapy interrupted [None]
